FAERS Safety Report 8786202 (Version 2)
Quarter: 2012Q4

REPORT INFORMATION
  Report Type: 
  Country: JP (occurrence: JP)
  Receive Date: 20120914
  Receipt Date: 20121023
  Transmission Date: 20130627
  Serious: Yes (Other)
  Sender: FDA-Public Use
  Company Number: JP-PFIZER INC-2012211696

PATIENT
  Age: 9 None
  Sex: Male

DRUGS (1)
  1. XALATAN [Suspect]
     Dosage: UNK
     Route: 047

REACTIONS (4)
  - Drug ineffective [Unknown]
  - Intraocular pressure increased [Unknown]
  - Glaucoma [Unknown]
  - Mydriasis [Unknown]
